FAERS Safety Report 4278356-2 (Version None)
Quarter: 2004Q1

REPORT INFORMATION
  Report Type: 
  Country: None (occurrence: None)
  Receive Date: 20040123
  Receipt Date: 20040114
  Transmission Date: 20041129
  Serious: Yes (Hospitalization)
  Sender: FDA-Public Use
  Company Number: AT-ROCHE-355890

PATIENT
  Age: 45 Year
  Sex: Female
  Weight: 57.3 kg

DRUGS (4)
  1. PEG-INTERFERON ALFA 2A (RO 25-8310) [Suspect]
     Route: 058
     Dates: start: 20031125
  2. RIBAVIRIN [Suspect]
     Route: 048
     Dates: start: 20031125
  3. PASPERTIN [Concomitant]
     Dates: start: 20031209
  4. FLUCTINE [Concomitant]
     Dates: start: 20031219

REACTIONS (1)
  - DEAFNESS UNILATERAL [None]
